FAERS Safety Report 13783601 (Version 6)
Quarter: 2017Q4

REPORT INFORMATION
  Report Type: Report from Study
  Country: US (occurrence: US)
  Receive Date: 20170724
  Receipt Date: 20171106
  Transmission Date: 20180320
  Serious: Yes (Hospitalization, Other)
  Sender: FDA-Public Use
  Company Number: US-JNJFOC-20170425264

PATIENT
  Age: 74 Year
  Sex: Male
  Weight: 59 kg

DRUGS (12)
  1. AMOXICILLIN. [Concomitant]
     Active Substance: AMOXICILLIN
  2. LEVOTHYROXINE. [Concomitant]
     Active Substance: LEVOTHYROXINE
  3. FLONASE [Concomitant]
     Active Substance: FLUTICASONE PROPIONATE
  4. IMBRUVICA [Suspect]
     Active Substance: IBRUTINIB
     Indication: CHRONIC LYMPHOCYTIC LEUKAEMIA
     Route: 048
     Dates: start: 201612
  5. ZYRTEC [Concomitant]
     Active Substance: CETIRIZINE HYDROCHLORIDE
  6. VILANTEROL [Concomitant]
  7. BREO ELLIPTA [Concomitant]
     Active Substance: FLUTICASONE FUROATE\VILANTEROL TRIFENATATE
  8. IMBRUVICA [Suspect]
     Active Substance: IBRUTINIB
     Indication: CHRONIC LYMPHOCYTIC LEUKAEMIA
     Route: 048
     Dates: start: 20170106
  9. IMIPRAMINE [Concomitant]
     Active Substance: IMIPRAMINE
  10. ATORVASTATIN [Concomitant]
     Active Substance: ATORVASTATIN
  11. IMBRUVICA [Suspect]
     Active Substance: IBRUTINIB
     Indication: CHRONIC LYMPHOCYTIC LEUKAEMIA
     Route: 048
     Dates: start: 20161106, end: 20170904
  12. IMBRUVICA [Suspect]
     Active Substance: IBRUTINIB
     Indication: CHRONIC LYMPHOCYTIC LEUKAEMIA
     Route: 048
     Dates: start: 20161211

REACTIONS (17)
  - Haemoglobin decreased [Unknown]
  - Peripheral swelling [Recovered/Resolved]
  - Respiratory disorder [Unknown]
  - Pneumothorax [Recovering/Resolving]
  - Squamous cell carcinoma [Unknown]
  - Post procedural haemorrhage [Recovered/Resolved]
  - Anaemia [Not Recovered/Not Resolved]
  - Bacterial infection [Not Recovered/Not Resolved]
  - Red blood cell count decreased [Not Recovered/Not Resolved]
  - White blood cell count increased [Unknown]
  - Sepsis [Unknown]
  - Asthma [Not Recovered/Not Resolved]
  - Pneumonia [Unknown]
  - Incorrect dose administered [Unknown]
  - Cough [Recovering/Resolving]
  - Neutrophil count increased [Not Recovered/Not Resolved]
  - Off label use [Unknown]

NARRATIVE: CASE EVENT DATE: 20161106
